FAERS Safety Report 6444119-2 (Version None)
Quarter: 2009Q4

REPORT INFORMATION
  Report Type: 
  Country: None (occurrence: None)
  Receive Date: 20091118
  Receipt Date: 20091110
  Transmission Date: 20100525
  Serious: Yes (Hospitalization)
  Sender: FDA-Public Use
  Company Number: US-JNJFOC-20091104475

PATIENT
  Age: 63 Year
  Sex: Male

DRUGS (5)
  1. PEPCID COMPLETE [Suspect]
     Route: 048
  2. PEPCID COMPLETE [Suspect]
     Indication: NAUSEA
     Route: 048
  3. STEROIDS NOS [Interacting]
     Indication: METASTATIC CARCINOMA OF THE BLADDER
  4. RADIATION THERAPY NOS [Concomitant]
     Indication: METASTATIC CARCINOMA OF THE BLADDER
  5. CHEMOTHERAPY [Concomitant]
     Indication: METASTATIC CARCINOMA OF THE BLADDER

REACTIONS (2)
  - DRUG INTERACTION [None]
  - PLATELET COUNT DECREASED [None]
